FAERS Safety Report 4694967-4 (Version None)
Quarter: 2005Q2

REPORT INFORMATION
  Report Type: 
  Country: None (occurrence: None)
  Receive Date: 20050617
  Receipt Date: 20050603
  Transmission Date: 20051028
  Serious: Yes (Other)
  Sender: FDA-Public Use
  Company Number: 230005M05SWE

PATIENT
  Age: 44 Year
  Sex: Female

DRUGS (6)
  1. REBIF [Suspect]
     Indication: MULTIPLE SCLEROSIS
     Dosage: 44 MCG, 3 IN 1 WEEKS, SUBCUTANEOUS
     Route: 058
  2. SERTRALINE HYDROCHLORIDE [Concomitant]
  3. MIANSERIN [Concomitant]
  4. OXAZEPAM [Concomitant]
  5. BUDESONIDE [Concomitant]
  6. TERBUTALINE SULFATE [Concomitant]

REACTIONS (1)
  - DEAFNESS [None]
